FAERS Safety Report 11336161 (Version 3)
Quarter: 2016Q2

REPORT INFORMATION
  Report Type: Report from Study
  Country: CO (occurrence: CO)
  Receive Date: 20150804
  Receipt Date: 20160405
  Transmission Date: 20160815
  Serious: Yes (Hospitalization)
  Sender: FDA-Public Use
  Company Number: PHHY2015CO093232

PATIENT
  Sex: Male
  Weight: 54 kg

DRUGS (2)
  1. TASIGNA [Suspect]
     Active Substance: NILOTINIB
     Indication: CHRONIC MYELOID LEUKAEMIA
     Dosage: 200 MG, QID
     Route: 048
     Dates: start: 20140428, end: 20160229
  2. HYDROXYUREA. [Concomitant]
     Active Substance: HYDROXYUREA
     Indication: PRODUCT USED FOR UNKNOWN INDICATION
     Dosage: 2 DF, BID
     Route: 065

REACTIONS (3)
  - Drug resistance [Unknown]
  - Inappropriate schedule of drug administration [Unknown]
  - Platelet count increased [Unknown]
